FAERS Safety Report 17997659 (Version 1)
Quarter: 2020Q3

REPORT INFORMATION
  Report Type: Spontaneous
  Country: RS (occurrence: RS)
  Receive Date: 20200708
  Receipt Date: 20200708
  Transmission Date: 20201103
  Serious: Yes (Other)
  Sender: FDA-Public Use
  Company Number: RS-GLAXOSMITHKLINE-RS2020GSK115485

PATIENT
  Age: 45 Year
  Sex: Female

DRUGS (6)
  1. THALIDOMIDE [Suspect]
     Active Substance: THALIDOMIDE
     Indication: SYSTEMIC LUPUS ERYTHEMATOSUS
     Dosage: UNK
     Dates: start: 200609
  2. AZATHIOPRINE. [Suspect]
     Active Substance: AZATHIOPRINE
     Indication: SYSTEMIC LUPUS ERYTHEMATOSUS
     Dosage: 100 MG, 1D
  3. BELIMUMAB [Suspect]
     Active Substance: BELIMUMAB
     Indication: SYSTEMIC LUPUS ERYTHEMATOSUS
     Dosage: UNK
     Dates: start: 200609
  4. PREDNISONE. [Suspect]
     Active Substance: PREDNISONE
     Indication: SYSTEMIC LUPUS ERYTHEMATOSUS
     Dosage: UNK
  5. PREDNISONE. [Suspect]
     Active Substance: PREDNISONE
     Dosage: 10 MG, 1D
     Dates: start: 200609
  6. METHOTREXATE. [Suspect]
     Active Substance: METHOTREXATE
     Indication: SYSTEMIC LUPUS ERYTHEMATOSUS
     Dosage: UNK
     Dates: start: 200609

REACTIONS (15)
  - Nervous system disorder [Recovering/Resolving]
  - Skin lesion [Recovering/Resolving]
  - Skin hyperpigmentation [Unknown]
  - Skin mass [Unknown]
  - Systemic lupus erythematosus disease activity index abnormal [Recovering/Resolving]
  - Macule [Unknown]
  - Epilepsy [Recovering/Resolving]
  - Serositis [Recovering/Resolving]
  - Fibrous histiocytoma [Unknown]
  - Pigmentation disorder [Unknown]
  - Rash [Unknown]
  - Mass excision [Unknown]
  - Fibrous histiocytoma [Unknown]
  - Acanthosis [Unknown]
  - Skin mass [Unknown]

NARRATIVE: CASE EVENT DATE: 201910
